FAERS Safety Report 23414319 (Version 1)
Quarter: 2024Q1

REPORT INFORMATION
  Report Type: Spontaneous
  Country: BE (occurrence: BE)
  Receive Date: 20240118
  Receipt Date: 20240118
  Transmission Date: 20240410
  Serious: Yes (Hospitalization, Other)
  Sender: FDA-Public Use
  Company Number: None

PATIENT
  Age: 75 Year
  Sex: Male

DRUGS (1)
  1. ENBREL [Suspect]
     Active Substance: ETANERCEPT
     Indication: Rheumatoid arthritis
     Dosage: 1 DF, CYCLIC (INJECTION EVERY 10 DAYS)
     Route: 030

REACTIONS (2)
  - Cerebrovascular accident [Not Recovered/Not Resolved]
  - Hemianopia [Not Recovered/Not Resolved]
